FAERS Safety Report 19037294 (Version 2)
Quarter: 2021Q3

REPORT INFORMATION
  Report Type: Spontaneous
  Country: JP (occurrence: JP)
  Receive Date: 20210322
  Receipt Date: 20210909
  Transmission Date: 20211014
  Serious: Yes (Hospitalization, Other)
  Sender: FDA-Public Use
  Company Number: JP-EPICPHARMA-JP-2021EPCLIT00276

PATIENT
  Age: 76 Year
  Sex: Female

DRUGS (8)
  1. 5 FLUORO URACIL [Suspect]
     Active Substance: FLUOROURACIL
     Indication: GASTRIC CANCER
     Route: 040
     Dates: start: 201708
  2. 5 FLUORO URACIL [Suspect]
     Active Substance: FLUOROURACIL
     Dosage: OVER  46 HOURS STARTING ON DAY 1, EVERY 2 WEEKS
     Route: 040
     Dates: start: 201708
  3. METHOTREXATE. [Concomitant]
     Active Substance: METHOTREXATE
     Indication: RHEUMATOID ARTHRITIS
     Route: 065
  4. NIVOLUMAB [Interacting]
     Active Substance: NIVOLUMAB
     Dosage: 240  MG/BODY
     Route: 065
     Dates: start: 201811
  5. LEUCOVORIN CALCIUM. [Suspect]
     Active Substance: LEUCOVORIN CALCIUM
     Indication: GASTRIC CANCER
     Route: 042
     Dates: start: 201708
  6. NIVOLUMAB [Interacting]
     Active Substance: NIVOLUMAB
     Indication: GASTRIC CANCER
     Dosage: EVERY 2 WEEKS
     Route: 065
     Dates: end: 201810
  7. OXALIPLATIN. [Suspect]
     Active Substance: OXALIPLATIN
     Indication: GASTRIC CANCER
     Route: 042
     Dates: start: 201708
  8. PACLITAXEL. [Interacting]
     Active Substance: PACLITAXEL
     Indication: GASTRIC CANCER
     Dosage: 80 MG/ M2
     Route: 065

REACTIONS (2)
  - Product use in unapproved indication [Unknown]
  - Neoplasm progression [Recovered/Resolved]

NARRATIVE: CASE EVENT DATE: 2017
